FAERS Safety Report 7306073-0 (Version None)
Quarter: 2011Q1

REPORT INFORMATION
  Report Type: 
  Country: None (occurrence: None)
  Receive Date: 20110210
  Receipt Date: 20110127
  Transmission Date: 20110831
  Serious: Yes (Hospitalization)
  Sender: FDA-Public Use
  Company Number: 026394

PATIENT
  Sex: Female

DRUGS (9)
  1. PAROXETINE HCL [Concomitant]
  2. TRANSIPEG [Concomitant]
  3. PARACETAMOL [Concomitant]
  4. URBANYL [Concomitant]
  5. SIMVASTATIN [Concomitant]
  6. DISCOTRINE [Concomitant]
  7. IMOVANE [Concomitant]
  8. INIPOMP [Concomitant]
  9. KEPPRA [Suspect]
     Dosage: 500 MG BID, ORAL
     Route: 048
     Dates: start: 20101208, end: 20101229

REACTIONS (2)
  - NORMOCHROMIC NORMOCYTIC ANAEMIA [None]
  - PANCYTOPENIA [None]
